FAERS Safety Report 25798168 (Version 3)
Quarter: 2025Q4

REPORT INFORMATION
  Report Type: Report from Study
  Country: US (occurrence: US)
  Receive Date: 20250912
  Receipt Date: 20251204
  Transmission Date: 20260118
  Serious: No
  Sender: MERCK SHARP & DOHME LLC
  Company Number: US-009507513-2322738

PATIENT
  Age: 66 Year
  Sex: Female
  Weight: 99.8 kg

DRUGS (27)
  1. SOTATERCEPT [Suspect]
     Active Substance: SOTATERCEPT
     Indication: Pulmonary arterial hypertension
     Dates: end: 2025
  2. SOTATERCEPT [Suspect]
     Active Substance: SOTATERCEPT
  3. SOTATERCEPT [Suspect]
     Active Substance: SOTATERCEPT
  4. SOTATERCEPT [Suspect]
     Active Substance: SOTATERCEPT
  5. REMODULIN [Suspect]
     Active Substance: TREPROSTINIL
     Indication: Pulmonary arterial hypertension
     Dosage: UNK, CONTINUING, CONCENTRATION 10.0 MG/ML
     Route: 058
     Dates: start: 20250107
  6. REMODULIN [Suspect]
     Active Substance: TREPROSTINIL
     Indication: Pulmonary arterial hypertension
     Dosage: 0.050 MICROG/KG (PHARMACY FILLED WITH 3 ML/CASSETTE; RATE OF 32 MCL/HR), CONTINUING, CONCENTRATIO...
     Route: 058
     Dates: start: 2025
  7. ADEMPAS [Concomitant]
     Active Substance: RIOCIGUAT
  8. OXYBUTYNIN CHLORIDE [Concomitant]
     Active Substance: OXYBUTYNIN CHLORIDE
  9. FUROSEMIDE [Concomitant]
     Active Substance: FUROSEMIDE
  10. PYRIDOXINE [Concomitant]
     Active Substance: PYRIDOXINE
  11. ACETAMINOPHEN\HYDROCODONE [Concomitant]
     Active Substance: ACETAMINOPHEN\HYDROCODONE
  12. SPIRIVA [Concomitant]
     Active Substance: TIOTROPIUM BROMIDE MONOHYDRATE
  13. ELIQUIS [Concomitant]
     Active Substance: APIXABAN
  14. FOLIC ACID [Concomitant]
     Active Substance: FOLIC ACID
  15. LEVOTHYROXINE [Concomitant]
     Active Substance: LEVOTHYROXINE
  16. SODIUM CHLORIDE [Concomitant]
     Active Substance: SODIUM CHLORIDE
  17. ALBUTEROL SULFATE [Concomitant]
     Active Substance: ALBUTEROL SULFATE
  18. CYANOCOBALAMIN [Concomitant]
     Active Substance: CYANOCOBALAMIN
  19. VITAMIN D2 [Concomitant]
     Active Substance: ERGOCALCIFEROL
  20. LETAIRIS [Concomitant]
     Active Substance: AMBRISENTAN
  21. BENADRYL [Concomitant]
     Active Substance: DIPHENHYDRAMINE HYDROCHLORIDE
  22. OXYGEN [Concomitant]
     Active Substance: OXYGEN
  23. OMEPRAZOLE [Concomitant]
     Active Substance: OMEPRAZOLE
  24. CETIRIZINE HCL [Concomitant]
     Active Substance: CETIRIZINE HYDROCHLORIDE
  25. ASPIRIN [Concomitant]
     Active Substance: ASPIRIN
  26. LOPERAMIDE [Concomitant]
     Active Substance: LOPERAMIDE
  27. LASIX [Concomitant]
     Active Substance: FUROSEMIDE

REACTIONS (1)
  - Platelet count decreased [Not Recovered/Not Resolved]

NARRATIVE: CASE EVENT DATE: 20250809
